FAERS Safety Report 9803172 (Version 1)
Quarter: 2014Q1

REPORT INFORMATION
  Report Type: Report from Study
  Country: US (occurrence: US)
  Receive Date: 20140108
  Receipt Date: 20140108
  Transmission Date: 20141002
  Serious: Yes (Other)
  Sender: FDA-Public Use
  Company Number: US-JNJFOC-20140100097

PATIENT
  Age: 32 Year
  Sex: Male

DRUGS (10)
  1. REMICADE [Suspect]
     Indication: CROHN^S DISEASE
     Dosage: 3 DOSES
     Route: 042
  2. REMICADE [Suspect]
     Indication: CROHN^S DISEASE
     Dosage: 8 TO 10 YEARS AGO
     Route: 042
  3. LEXAPRO [Concomitant]
     Indication: ANTIDEPRESSANT THERAPY
     Route: 048
  4. ROPINIROLE [Concomitant]
     Indication: RESTLESS LEGS SYNDROME
     Route: 048
  5. ELAVIL [Concomitant]
     Route: 048
  6. DIPHENOXYLATE AND ATROPINE [Concomitant]
     Indication: DIARRHOEA
     Dosage: 3-4 TIMES A DAY
     Route: 048
  7. LIPITOR [Concomitant]
     Indication: BLOOD CHOLESTEROL ABNORMAL
     Route: 048
  8. OXYCODONE [Concomitant]
     Indication: PAIN
     Route: 048
  9. LORTAB [Concomitant]
     Indication: PAIN
     Dosage: 7.5/325MG
     Route: 048
  10. AMBIEN [Concomitant]
     Indication: SLEEP DISORDER
     Route: 048

REACTIONS (6)
  - Rheumatoid arthritis [Not Recovered/Not Resolved]
  - Eczema [Not Recovered/Not Resolved]
  - Nasopharyngitis [Unknown]
  - Hearing impaired [Unknown]
  - Crohn^s disease [Not Recovered/Not Resolved]
  - Upper respiratory tract infection [Not Recovered/Not Resolved]
